FAERS Safety Report 9371821 (Version 2)
Quarter: 2013Q3

REPORT INFORMATION
  Report Type: Spontaneous
  Country: DK (occurrence: DE)
  Receive Date: 20130627
  Receipt Date: 20130906
  Transmission Date: 20140515
  Serious: Yes (Other)
  Sender: FDA-Public Use
  Company Number: DE-FRI-1000046213

PATIENT
  Age: 31 Year
  Sex: Female

DRUGS (4)
  1. ESCITALOPRAM [Suspect]
     Indication: PANIC DISORDER
     Dosage: 10 MG
     Route: 048
     Dates: start: 20121210, end: 20130120
  2. ESCITALOPRAM [Suspect]
     Indication: DEPRESSION
     Dosage: 15 MG
     Route: 048
     Dates: start: 20130121, end: 20130221
  3. PAROXETIN [Suspect]
     Indication: PANIC DISORDER
     Dosage: 20 MG
     Route: 048
     Dates: start: 20130222
  4. PAROXETIN [Suspect]
     Indication: DEPRESSION

REACTIONS (3)
  - Nocturia [Not Recovered/Not Resolved]
  - Pollakiuria [Not Recovered/Not Resolved]
  - Inappropriate antidiuretic hormone secretion [Not Recovered/Not Resolved]
